FAERS Safety Report 25725704 (Version 2)
Quarter: 2025Q3

REPORT INFORMATION
  Report Type: Spontaneous
  Country: CH (occurrence: CH)
  Receive Date: 20250826
  Receipt Date: 20250925
  Transmission Date: 20251020
  Serious: Yes (Life-Threatening, Other)
  Sender: MELINTA THERAPEUTICS
  Company Number: CH-MLMSERVICE-20250728-PI594858-00034-1

PATIENT

DRUGS (2)
  1. METOPROLOL SUCCINATE [Suspect]
     Active Substance: METOPROLOL SUCCINATE
     Indication: Ventricular tachycardia
     Route: 042
  2. AMIODARONE [Suspect]
     Active Substance: AMIODARONE
     Indication: Ventricular tachycardia
     Route: 042

REACTIONS (3)
  - Condition aggravated [Recovering/Resolving]
  - Blood pressure decreased [Recovering/Resolving]
  - Hypoperfusion [Recovering/Resolving]
